FAERS Safety Report 12692795 (Version 2)
Quarter: 2016Q3

REPORT INFORMATION
  Report Type: Spontaneous
  Country: BR (occurrence: BR)
  Receive Date: 20160829
  Receipt Date: 20160902
  Transmission Date: 20161109
  Serious: Yes (Other)
  Sender: FDA-Public Use
  Company Number: BR-PFIZER INC-2016392385

PATIENT
  Age: 71 Year
  Sex: Female
  Weight: 67 kg

DRUGS (3)
  1. XALATAN [Suspect]
     Active Substance: LATANOPROST
     Indication: GLAUCOMA
     Dosage: 1 DROP EACH EYE AT NIGHT
     Route: 047
  2. AZORGA [Concomitant]
     Active Substance: BRINZOLAMIDE\TIMOLOL MALEATE
     Indication: CATARACT
     Dosage: 1 DROP EVERY 12HOURS
     Dates: end: 201507
  3. ALPHAGAN P [Concomitant]
     Active Substance: BRIMONIDINE TARTRATE
     Dosage: UNK
     Dates: end: 201507

REACTIONS (1)
  - Cataract [Unknown]
